FAERS Safety Report 21558642 (Version 1)
Quarter: 2022Q4

REPORT INFORMATION
  Report Type: Spontaneous
  Country: US (occurrence: US)
  Receive Date: 20221107
  Receipt Date: 20221107
  Transmission Date: 20230113
  Serious: No
  Sender: FDA-Public Use
  Company Number: US-LUPIN PHARMACEUTICALS INC.-2022-13136

PATIENT

DRUGS (1)
  1. ALBUTEROL SULFATE [Suspect]
     Active Substance: ALBUTEROL SULFATE
     Indication: Asthma
     Dosage: UNK UNK, PRN 2 PUFFS (EVERY 4 HOURS)
     Dates: start: 20221002

REACTIONS (4)
  - Wrong technique in device usage process [Unknown]
  - Device deposit issue [Unknown]
  - Product preparation error [Unknown]
  - No adverse event [Unknown]
